FAERS Safety Report 5267314-7 (Version None)
Quarter: 2007Q1

REPORT INFORMATION
  Report Type: 
  Country: None (occurrence: None)
  Receive Date: 20070316
  Receipt Date: 20070309
  Transmission Date: 20070707
  Serious: Yes (Hospitalization)
  Sender: FDA-Public Use
  Company Number: IT-GLAXOSMITHKLINE-B0461992A

PATIENT
  Age: 71 Year
  Sex: Male

DRUGS (6)
  1. LANOXIN [Suspect]
     Indication: ARRHYTHMIA
     Dosage: .06MG ALTERNATE DAYS
     Route: 048
     Dates: start: 20060101, end: 20070127
  2. CORDARONE [Suspect]
     Indication: ARRHYTHMIA
     Dosage: 200MG ALTERNATE DAYS
     Route: 048
     Dates: start: 20060101, end: 20070127
  3. FERROUS GLUCONATE [Concomitant]
     Route: 048
  4. FRUSEMIDE [Concomitant]
     Route: 048
  5. GLYBURIDE AND METFORMIN HCL [Concomitant]
     Route: 048
  6. ALDACTONE [Concomitant]

REACTIONS (7)
  - ANOREXIA [None]
  - ASTHENIA [None]
  - BLOOD THYROID STIMULATING HORMONE INCREASED [None]
  - COUGH [None]
  - HYPERKALAEMIA [None]
  - IRON DEFICIENCY ANAEMIA [None]
  - MICROCYTIC ANAEMIA [None]
